FAERS Safety Report 10965708 (Version 1)
Quarter: 2015Q1

REPORT INFORMATION
  Report Type: Spontaneous
  Country: US (occurrence: None)
  Receive Date: 20150327
  Receipt Date: 20150327
  Transmission Date: 20150721
  Serious: Yes (Life-Threatening)
  Sender: FDA-Public Use
  Company Number: None

PATIENT
  Age: 17 Year
  Sex: Female
  Weight: 65.77 kg

DRUGS (1)
  1. IMPLANON [Suspect]
     Active Substance: ETONOGESTREL
     Dosage: IMPLANON, 3 YEARS, GIVEN INTO/UNDER THE SKIN

REACTIONS (5)
  - Fatigue [None]
  - Cardiac arrest [None]
  - Blood potassium decreased [None]
  - Ovarian cyst [None]
  - Hypertension [None]

NARRATIVE: CASE EVENT DATE: 20150307
